FAERS Safety Report 5117410-X (Version None)
Quarter: 2006Q3

REPORT INFORMATION
  Report Type: 
  Country: None (occurrence: None)
  Receive Date: 20060929
  Receipt Date: 20060920
  Transmission Date: 20061208
  Serious: Yes (Death)
  Sender: FDA-Public Use
  Company Number: AU-JNJFOC-20060904565

PATIENT
  Sex: Female

DRUGS (1)
  1. RISPERDAL [Suspect]
     Indication: ABNORMAL BEHAVIOUR

REACTIONS (5)
  - DEATH [None]
  - FALL [None]
  - LOWER LIMB FRACTURE [None]
  - PARKINSONISM [None]
  - UPPER LIMB FRACTURE [None]
